FAERS Safety Report 17130974 (Version 1)
Quarter: 2019Q4

REPORT INFORMATION
  Report Type: Spontaneous
  Country: DE (occurrence: DE)
  Receive Date: 20191209
  Receipt Date: 20191209
  Transmission Date: 20200122
  Serious: Yes (Other)
  Sender: FDA-Public Use
  Company Number: NVSC2018DE000514

PATIENT
  Sex: Male

DRUGS (4)
  1. DEXAHEXAL /00016010/ [Suspect]
     Active Substance: DEXAMETHASONE
     Indication: PRODUCT USED FOR UNKNOWN INDICATION
     Dosage: 40 MG, Q6H
     Route: 065
     Dates: start: 20180321
  2. RAMIPRIL. [Concomitant]
     Active Substance: RAMIPRIL
     Indication: RAYNAUD^S PHENOMENON
     Dosage: 5 MG, QD
     Route: 065
  3. SIMVAHEXAL [Suspect]
     Active Substance: SIMVASTATIN
     Indication: LOW DENSITY LIPOPROTEIN INCREASED
     Dosage: 20 MG, QD
     Route: 065
     Dates: start: 20160405, end: 20160522
  4. SIMVAHEXAL [Suspect]
     Active Substance: SIMVASTATIN
     Dosage: 10 MG, QD
     Route: 065
     Dates: start: 20160523, end: 201607

REACTIONS (11)
  - Systemic scleroderma [Unknown]
  - Rash [Not Recovered/Not Resolved]
  - Arthralgia [Not Recovered/Not Resolved]
  - Pain [Unknown]
  - Pain in extremity [Not Recovered/Not Resolved]
  - Mobility decreased [Unknown]
  - Drug ineffective [Unknown]
  - Connective tissue disorder [Unknown]
  - Myalgia [Not Recovered/Not Resolved]
  - Alopecia [Recovered/Resolved]
  - Hypergammaglobulinaemia benign monoclonal [Unknown]

NARRATIVE: CASE EVENT DATE: 2016
